FAERS Safety Report 16927043 (Version 1)
Quarter: 2019Q4

REPORT INFORMATION
  Report Type: Spontaneous
  Country: AT (occurrence: AT)
  Receive Date: 20191016
  Receipt Date: 20191016
  Transmission Date: 20200122
  Serious: Yes (Hospitalization, Other)
  Sender: FDA-Public Use
  Company Number: AT-ELI_LILLY_AND_COMPANY-AT201910006094

PATIENT
  Age: 73 Year
  Sex: Male

DRUGS (2)
  1. PEMETREXED. [Suspect]
     Active Substance: PEMETREXED
     Indication: LUNG ADENOCARCINOMA STAGE III
     Dosage: 1010 MG, CYCLICAL
     Route: 065
  2. CARBOPLATIN. [Suspect]
     Active Substance: CARBOPLATIN
     Indication: LUNG ADENOCARCINOMA STAGE III
     Dosage: 380 MG, CYCLICAL
     Route: 065

REACTIONS (1)
  - Acute myocardial infarction [Recovered/Resolved]
